FAERS Safety Report 25652422 (Version 1)
Quarter: 2025Q3

REPORT INFORMATION
  Report Type: Spontaneous
  Country: US (occurrence: US)
  Receive Date: 20250807
  Receipt Date: 20250807
  Transmission Date: 20251021
  Serious: No
  Sender: ROCHE
  Company Number: US-ROCHE-10000352688

PATIENT
  Sex: Male
  Weight: 61.23 kg

DRUGS (7)
  1. ACTEMRA [Suspect]
     Active Substance: TOCILIZUMAB
     Indication: Giant cell arteritis
     Route: 058
     Dates: start: 202506
  2. ACTEMRA [Suspect]
     Active Substance: TOCILIZUMAB
     Indication: Optic ischaemic neuropathy
  3. PREDNISONE [Concomitant]
     Active Substance: PREDNISONE
     Indication: Optic ischaemic neuropathy
  4. RINVOQ [Concomitant]
     Active Substance: UPADACITINIB
     Indication: Optic ischaemic neuropathy
  5. MET 500 [Concomitant]
     Indication: Diabetes mellitus
  6. GLIMEPIRIDE [Concomitant]
     Active Substance: GLIMEPIRIDE
     Indication: Diabetes mellitus
  7. LISINOPRIL [Concomitant]
     Active Substance: LISINOPRIL
     Indication: Hypertension

REACTIONS (2)
  - Vision blurred [Recovered/Resolved]
  - Visual impairment [Not Recovered/Not Resolved]
